FAERS Safety Report 9115841 (Version 21)
Quarter: 2016Q4

REPORT INFORMATION
  Report Type: Spontaneous
  Country: US (occurrence: US)
  Receive Date: 20130225
  Receipt Date: 20161212
  Transmission Date: 20170207
  Serious: Yes (Hospitalization, Other)
  Sender: FDA-Public Use
  Company Number: US-GLAXOSMITHKLINE-A0990057A

PATIENT

DRUGS (19)
  1. FLOLAN [Suspect]
     Active Substance: EPOPROSTENOL SODIUM
     Indication: PULMONARY ARTERIAL HYPERTENSION
     Dosage: 40.85 NG/KG/MIN CONTINUOUSDOSE: 40.85 NG/KG/MIN CONTINUOUSLYCONCENTRATION: 75,000 NG/MLVIAL STR[...]
     Route: 042
     Dates: start: 20071211
  2. FLOLAN [Suspect]
     Active Substance: EPOPROSTENOL SODIUM
     Dosage: 39.3 NG/KG/MIN (CONCENTRATION 75,000 NG/ML, 80 ML/DAY, VIAL STRENGTH 1.5)
     Route: 042
  3. FLOLAN [Suspect]
     Active Substance: EPOPROSTENOL SODIUM
     Dosage: 39.3 NG/KG/MIN
  4. FLOLAN [Suspect]
     Active Substance: EPOPROSTENOL SODIUM
     Dosage: 38.3 NG/KG/MIN CO (CONCENTRATION: 75,000 NG/ML, PUMP RATE: 78 ML/DAY, VIAL STRENGTH: 1.5 MG/ML)
     Route: 042
     Dates: start: 20080109
  5. FLOLAN [Suspect]
     Active Substance: EPOPROSTENOL SODIUM
     Dosage: 34.39 NG/KG/MIN, CONTINUOUSLY
     Route: 042
  6. FLOLAN [Suspect]
     Active Substance: EPOPROSTENOL SODIUM
     Indication: PULMONARY ARTERIAL HYPERTENSION
     Dosage: UNK
  7. FLOLAN [Suspect]
     Active Substance: EPOPROSTENOL SODIUM
     Dosage: 38.3 NG/KG/MIN CO (CONCENTRATION: 75,000 NG/ML, PUMP RATE: 78 ML/DAY, VIAL STRENGTH: 1.5 MG/ML)
     Route: 042
     Dates: start: 20080109
  8. FLOLAN [Suspect]
     Active Substance: EPOPROSTENOL SODIUM
     Dosage: 37.3 NG/KG/MIN
     Route: 042
  9. FLOLAN [Suspect]
     Active Substance: EPOPROSTENOL SODIUM
     Dosage: 40.6 NG/KG/MIN, CONTINUOUSLY
     Route: 042
  10. FLOLAN [Suspect]
     Active Substance: EPOPROSTENOL SODIUM
     Dosage: 22 NG/KG/MIN (CONCENTRATION 750000 NG/ML, PUMP RATE 80 ML/DAY, VIAL STRENGTH 1.5), CO
     Route: 042
  11. FLOLAN [Suspect]
     Active Substance: EPOPROSTENOL SODIUM
     Dosage: 22.2 DF, CO
  12. LETAIRIS [Concomitant]
     Active Substance: AMBRISENTAN
  13. FLOLAN [Suspect]
     Active Substance: EPOPROSTENOL SODIUM
     Dosage: UNK
     Dates: start: 20071211
  14. FLOLAN [Suspect]
     Active Substance: EPOPROSTENOL SODIUM
     Dosage: UNK
     Dates: start: 20071211
  15. COUMADIN [Concomitant]
     Active Substance: WARFARIN SODIUM
  16. REVATIO [Concomitant]
     Active Substance: SILDENAFIL CITRATE
  17. FLOLAN [Suspect]
     Active Substance: EPOPROSTENOL SODIUM
     Dosage: UNK
     Dates: start: 20071211
  18. FLOLAN [Suspect]
     Active Substance: EPOPROSTENOL SODIUM
     Dosage: 39.3NG/KG/MIN
     Route: 042
  19. FLOLAN [Suspect]
     Active Substance: EPOPROSTENOL SODIUM
     Dosage: 39.3 NG/KG/MIN, CO
     Route: 042

REACTIONS (26)
  - Hot flush [Not Recovered/Not Resolved]
  - Catheter site infection [Unknown]
  - Urinary tract infection [Unknown]
  - Pain [Recovered/Resolved]
  - Furuncle [Not Recovered/Not Resolved]
  - Rash pruritic [Unknown]
  - Pruritus [Unknown]
  - Suture related complication [Unknown]
  - Hyperhidrosis [Not Recovered/Not Resolved]
  - Colonoscopy [Unknown]
  - Device related infection [Unknown]
  - Pyrexia [Recovered/Resolved]
  - Skin infection [Unknown]
  - Catheter site discharge [Not Recovered/Not Resolved]
  - Dermatitis allergic [Not Recovered/Not Resolved]
  - Nasal congestion [Recovered/Resolved]
  - Hospitalisation [Unknown]
  - Catheter site rash [Unknown]
  - Central venous catheterisation [Unknown]
  - Sepsis [Recovered/Resolved]
  - Pain in extremity [Not Recovered/Not Resolved]
  - Pain in jaw [Unknown]
  - Catheter site pain [Not Recovered/Not Resolved]
  - Tooth infection [Unknown]
  - Suture insertion [Unknown]
  - Pneumonia [Unknown]

NARRATIVE: CASE EVENT DATE: 20120816
